FAERS Safety Report 9293953 (Version 1)
Quarter: 2013Q1

REPORT INFORMATION
  Report Type: Spontaneous
  Country: US (occurrence: None)
  Receive Date: 20121221
  Receipt Date: 20121221
  Transmission Date: 20140127
  Serious: Yes (Hospitalization)
  Sender: FDA-Public Use
  Company Number: PHEH2012US008938

PATIENT
  Age: 12 Year
  Sex: Male

DRUGS (1)
  1. FOCALIN XR [Suspect]

REACTIONS (1)
  - Aggression [None]
